FAERS Safety Report 9505853 (Version 1)
Quarter: 2013Q1

REPORT INFORMATION
  Report Type: Spontaneous
  Country: US (occurrence: None)
  Receive Date: 20130219
  Receipt Date: 20130219
  Transmission Date: 20140127
  Serious: Yes (Disabling)
  Sender: FDA-Public Use
  Company Number: 1201USA00384

PATIENT
  Age: 67 Year
  Sex: Female

DRUGS (2)
  1. ZOCOR [Suspect]
     Indication: BLOOD CHOLESTEROL INCREASED
     Route: 048
     Dates: start: 201007, end: 201103
  2. VARAPAMIL (VERAPAMIL) [Concomitant]

REACTIONS (3)
  - Myalgia [None]
  - Amnesia [None]
  - Asthenia [None]
